FAERS Safety Report 7010793 (Version 2)
Quarter: 2014Q3

REPORT INFORMATION
  Report Type: Spontaneous
  Country: US (occurrence: None)
  Receive Date: 20090526
  Receipt Date: 20140903
  Transmission Date: 20150326
  Serious: Yes (Hospitalization, Other)
  Sender: FDA-Public Use
  Company Number: 2009S1004058

PATIENT
  Age: 77 Year
  Sex: Female
  Weight: 77 kg

DRUGS (1)
  1. PHOSPHO-SODA [Suspect]
     Active Substance: SODIUM PHOSPHATE, DIBASIC\SODIUM PHOSPHATE, MONOBASIC
     Indication: COLONOSCOPY
     Dosage: PO
     Route: 048
     Dates: start: 20071106, end: 20071107

REACTIONS (17)
  - Accelerated hypertension [None]
  - Dry mouth [None]
  - Renal failure acute [None]
  - Iron deficiency anaemia [None]
  - Acute phosphate nephropathy [None]
  - Nephropathy toxic [None]
  - Hyperparathyroidism secondary [None]
  - Renal failure [None]
  - Malignant hypertension [None]
  - Oedema peripheral [None]
  - Renal osteodystrophy [None]
  - Dialysis [None]
  - Nephrogenic anaemia [None]
  - Hypoaesthesia [None]
  - Paraesthesia [None]
  - Metabolic acidosis [None]
  - Arteriovenous fistula site complication [None]
